FAERS Safety Report 8289991-9 (Version None)
Quarter: 2012Q2

REPORT INFORMATION
  Report Type: 
  Country: None (occurrence: None)
  Receive Date: 20120417
  Receipt Date: 20120410
  Transmission Date: 20120825
  Serious: Yes (Life-Threatening, Hospitalization, Disabling)
  Sender: FDA-Public Use
  Company Number: US-CELGENEUS-163-21880-12023216

PATIENT
  Sex: Male

DRUGS (10)
  1. ZOMETA [Concomitant]
     Route: 065
  2. HYZAAR [Concomitant]
     Route: 065
  3. ASPIRIN [Concomitant]
     Indication: CORONARY ARTERY DISEASE
     Dosage: 325 MILLIGRAM
     Route: 048
  4. DEXAMETHASONE [Concomitant]
     Dosage: 40 MILLIGRAM
     Route: 048
  5. METFORMIN HCL [Concomitant]
     Indication: DIABETES MELLITUS
     Dosage: 500 MILLIGRAM
     Route: 048
  6. REVLIMID [Suspect]
     Indication: MULTIPLE MYELOMA
     Dosage: 25 MILLIGRAM
     Route: 048
     Dates: start: 20110829
  7. REVLIMID [Suspect]
     Dosage: 10 MILLIGRAM
     Route: 048
     Dates: start: 20111001, end: 20111222
  8. ASPIRIN [Concomitant]
  9. GLIPIZIDE [Concomitant]
     Indication: DIABETES MELLITUS
     Dosage: 5 MILLIGRAM
     Route: 048
  10. CRESTOR [Concomitant]
     Dosage: 10 MILLIGRAM
     Route: 048

REACTIONS (4)
  - ANAEMIA [None]
  - HERPES ZOSTER [None]
  - HYPERGLYCAEMIA [None]
  - RENAL FAILURE ACUTE [None]
